FAERS Safety Report 9824786 (Version 1)
Quarter: 2014Q1

REPORT INFORMATION
  Report Type: Spontaneous
  Country: US (occurrence: US)
  Receive Date: 20140115
  Receipt Date: 20140115
  Transmission Date: 20141002
  Serious: Yes (Hospitalization, Other)
  Sender: FDA-Public Use
  Company Number: US-ROXANE LABORATORIES, INC.-2014-RO-00043RO

PATIENT
  Age: 71 Year
  Sex: Female

DRUGS (1)
  1. AZATHIOPRINE [Suspect]
     Dosage: 50 MG
     Route: 048
     Dates: start: 20131217, end: 201401

REACTIONS (3)
  - Renal failure acute [Unknown]
  - Hypotension [Recovered/Resolved]
  - Urticaria [Not Recovered/Not Resolved]
